FAERS Safety Report 6436435-5 (Version None)
Quarter: 2009Q4

REPORT INFORMATION
  Report Type: 
  Country: None (occurrence: None)
  Receive Date: 20091110
  Receipt Date: 20080331
  Transmission Date: 20100525
  Serious: No
  Sender: FDA-Public Use
  Company Number: AEUSA200800069

PATIENT
  Age: 65 Year
  Sex: Female

DRUGS (2)
  1. GAMUNEX [Suspect]
     Indication: DRUG USE FOR UNKNOWN INDICATION
     Dosage: IV
     Route: 042
  2. GAMUNEX [Suspect]

REACTIONS (1)
  - RASH GENERALISED [None]
